FAERS Safety Report 14272381 (Version 1)
Quarter: 2017Q4

REPORT INFORMATION
  Report Type: Spontaneous
  Country: US (occurrence: None)
  Receive Date: 20171211
  Receipt Date: 20171211
  Transmission Date: 20180321
  Serious: Yes (Hospitalization, Disabling)
  Sender: FDA-Public Use
  Company Number: None

PATIENT
  Age: 31 Year
  Sex: Female
  Weight: 54.43 kg

DRUGS (2)
  1. PARAGARD T 380A [Suspect]
     Active Substance: COPPER
  2. MULTI VITAMINS [Concomitant]
     Active Substance: VITAMINS

REACTIONS (8)
  - Device breakage [None]
  - Dizziness [None]
  - Hyperhidrosis [None]
  - Chills [None]
  - Loss of consciousness [None]
  - Cold sweat [None]
  - Abdominal pain [None]
  - Pallor [None]

NARRATIVE: CASE EVENT DATE: 20170912
